FAERS Safety Report 18665874 (Version 3)
Quarter: 2021Q1

REPORT INFORMATION
  Report Type: Spontaneous
  Country: US (occurrence: US)
  Receive Date: 20201226
  Receipt Date: 20210228
  Transmission Date: 20210419
  Serious: No
  Sender: FDA-Public Use
  Company Number: NVSC2020US329891

PATIENT
  Sex: Female
  Weight: 81.65 kg

DRUGS (1)
  1. OMNITROPE [Suspect]
     Active Substance: SOMATROPIN
     Indication: PRODUCT USED FOR UNKNOWN INDICATION
     Dosage: UNK
     Route: 065

REACTIONS (5)
  - Reaction to preservatives [Unknown]
  - Rash [Unknown]
  - Urticaria [Unknown]
  - Weight increased [Unknown]
  - Burning sensation [Unknown]
